FAERS Safety Report 5485992-4 (Version None)
Quarter: 2007Q4

REPORT INFORMATION
  Report Type: 
  Country: None (occurrence: None)
  Receive Date: 20071012
  Receipt Date: 20070928
  Transmission Date: 20080405
  Serious: Yes (Other)
  Sender: FDA-Public Use
  Company Number: ACO_00387_2007

PATIENT

DRUGS (2)
  1. SIRDALUD (SIRDALUD - TIZANIDINE HYDROCHLORIDE) (NOT SPECIFIED) [Suspect]
     Indication: DRUG USE FOR UNKNOWN INDICATION
     Dosage: (DF ORAL)
     Route: 048
  2. NORFLEX [Concomitant]

REACTIONS (3)
  - ANAPHYLACTIC SHOCK [None]
  - NAUSEA [None]
  - PARAESTHESIA [None]
